FAERS Safety Report 9919381 (Version 2)
Quarter: 2014Q1

REPORT INFORMATION
  Report Type: Spontaneous
  Country: BR (occurrence: BR)
  Receive Date: 20140224
  Receipt Date: 20140227
  Transmission Date: 20141002
  Serious: Yes (Other)
  Sender: FDA-Public Use
  Company Number: BR-PFIZER INC-2014049007

PATIENT
  Age: 56 Year
  Sex: Female
  Weight: 73 kg

DRUGS (6)
  1. CELEBRA [Suspect]
     Dosage: UNK
     Dates: start: 2011
  2. OSSOTRAT [Concomitant]
     Indication: OSTEOPOROSIS
     Dosage: UNK
     Dates: start: 2009
  3. RIVOTRIL [Concomitant]
     Indication: DEPRESSION
     Dosage: UNK
     Dates: start: 2009
  4. RIVOTRIL [Concomitant]
     Indication: ANXIETY
  5. SELOZOK [Concomitant]
     Indication: BLOOD PRESSURE ABNORMAL
     Dosage: UNK
     Dates: start: 2009
  6. VASATIV [Concomitant]
     Indication: CARDIOVASCULAR DISORDER
     Dosage: UNK
     Dates: start: 2011

REACTIONS (3)
  - Cataract [Unknown]
  - Fatigue [Unknown]
  - Gait disturbance [Unknown]
